FAERS Safety Report 6603838-5 (Version None)
Quarter: 2010Q1

REPORT INFORMATION
  Report Type: 
  Country: None (occurrence: None)
  Receive Date: 20100226
  Receipt Date: 20091222
  Transmission Date: 20100710
  Serious: No
  Sender: FDA-Public Use
  Company Number: A0769111A

PATIENT
  Age: 58 Year
  Sex: Male

DRUGS (6)
  1. LAMICTAL CD [Suspect]
     Indication: BIPOLAR DISORDER
     Dosage: 200MG PER DAY
     Route: 048
     Dates: start: 20081230
  2. ZOLOFT [Concomitant]
  3. WELLBUTRIN [Concomitant]
  4. PROVIGIL [Concomitant]
  5. XANAX [Concomitant]
  6. ZYPREXA [Concomitant]

REACTIONS (3)
  - ABNORMAL DREAMS [None]
  - DRUG INEFFECTIVE [None]
  - FATIGUE [None]
